FAERS Safety Report 6519541-6 (Version None)
Quarter: 2009Q4

REPORT INFORMATION
  Report Type: 
  Country: None (occurrence: None)
  Receive Date: 20091228
  Receipt Date: 20091218
  Transmission Date: 20100525
  Serious: Yes (Other)
  Sender: FDA-Public Use
  Company Number: US-SANOFI-AVENTIS-2009SA010192

PATIENT
  Age: 57 Year
  Sex: Male

DRUGS (3)
  1. LANTUS [Suspect]
     Dosage: DOSE:53 UNIT(S)
     Route: 058
     Dates: start: 20070101
  2. APIDRA [Suspect]
     Dosage: DOSE:50 UNIT(S)
     Route: 058
     Dates: start: 20070101
  3. SOLOSTAR [Suspect]
     Dates: start: 20090801

REACTIONS (5)
  - BLOOD GLUCOSE INCREASED [None]
  - CATARACT [None]
  - GLYCOSYLATED HAEMOGLOBIN INCREASED [None]
  - MACULOPATHY [None]
  - RETINOPATHY [None]
